FAERS Safety Report 5522375-2 (Version None)
Quarter: 2007Q4

REPORT INFORMATION
  Report Type: 
  Country: None (occurrence: None)
  Receive Date: 20071120
  Receipt Date: 20071108
  Transmission Date: 20080405
  Serious: Yes (Disabling, Other)
  Sender: FDA-Public Use
  Company Number: JP-PFIZER INC-2007086916

PATIENT
  Sex: Male
  Weight: 13.2 kg

DRUGS (7)
  1. ZITHROMAX [Suspect]
     Indication: BRONCHOPNEUMONIA
     Dates: start: 20071010, end: 20071012
  2. RINDERON [Concomitant]
     Route: 048
     Dates: start: 20071010, end: 20071010
  3. MEPTIN [Concomitant]
     Route: 048
     Dates: start: 20071009, end: 20071015
  4. ASVERIN [Concomitant]
     Route: 048
     Dates: start: 20071009, end: 20071015
  5. MUCODYNE [Concomitant]
     Route: 048
     Dates: start: 20071009, end: 20071015
  6. ONON [Concomitant]
     Route: 048
  7. ANHIBA [Concomitant]

REACTIONS (1)
  - URINARY RETENTION [None]
